FAERS Safety Report 10427179 (Version 1)
Quarter: 2014Q3

REPORT INFORMATION
  Report Type: Spontaneous
  Country: CO (occurrence: CO)
  Receive Date: 20140903
  Receipt Date: 20140903
  Transmission Date: 20150326
  Serious: Yes (Life-Threatening)
  Sender: FDA-Public Use
  Company Number: CO-AMGEN-COLSP2014067056

PATIENT
  Age: 21 Year
  Sex: Female

DRUGS (1)
  1. PROLIA [Suspect]
     Active Substance: DENOSUMAB
     Indication: HYPERCALCAEMIA
     Dosage: 60 MG, UNK
     Route: 058
     Dates: start: 201408, end: 201408

REACTIONS (3)
  - Tetany [Unknown]
  - Off label use [Unknown]
  - Hypocalcaemia [Unknown]

NARRATIVE: CASE EVENT DATE: 201408
